FAERS Safety Report 7266503-X (Version None)
Quarter: 2011Q1

REPORT INFORMATION
  Report Type: 
  Country: None (occurrence: None)
  Receive Date: 20110131
  Receipt Date: 20110124
  Transmission Date: 20110831
  Serious: Yes (Hospitalization, Other)
  Sender: FDA-Public Use
  Company Number: US-ELI_LILLY_AND_COMPANY-US200906005311

PATIENT
  Sex: Female
  Weight: 85.714 kg

DRUGS (14)
  1. DIOVAN [Concomitant]
     Dosage: UNK, DAILY (1/D)
  2. JANUVIA [Concomitant]
  3. LISINOPRIL [Concomitant]
     Indication: BLOOD PRESSURE
     Dosage: 40 MG, DAILY (1/D)
     Route: 048
  4. OMEPRAZOLE [Concomitant]
  5. METFORMIN [Concomitant]
  6. ALENDRONATE SODIUM [Concomitant]
     Dosage: 70 MG, WEEKLY (1/W)
     Route: 048
  7. XANAX [Concomitant]
     Dosage: 1 MG, 3/D
     Route: 048
  8. LEVOTHYROXINE SODIUM [Concomitant]
     Indication: HYPOTHYROIDISM
     Dosage: 25 UG, DAILY (1/D)
     Route: 048
  9. PREVACID [Concomitant]
  10. BYETTA [Suspect]
     Dosage: UNK, UNK
     Dates: start: 20050101
  11. BYETTA [Suspect]
     Dosage: 5 UG, 2/D
     Route: 058
     Dates: start: 20060901, end: 20080201
  12. BYETTA [Suspect]
     Dosage: 10 UG, UNK
     Dates: start: 20080201, end: 20080819
  13. AMOXICILLIN [Concomitant]
  14. ZOCOR [Concomitant]
     Dosage: 20 MG, DAILY (1/D)
     Route: 048

REACTIONS (13)
  - URINARY TRACT INFECTION [None]
  - RENAL FAILURE ACUTE [None]
  - ABDOMINAL DISTENSION [None]
  - BLADDER CANCER [None]
  - DEHYDRATION [None]
  - CHOLECYSTITIS [None]
  - OFF LABEL USE [None]
  - PANCREATITIS [None]
  - POST PROCEDURAL INFECTION [None]
  - ABDOMINAL PAIN [None]
  - RENAL INJURY [None]
  - CHOLELITHIASIS [None]
  - DYSPEPSIA [None]
